FAERS Safety Report 5136060-2 (Version None)
Quarter: 2006Q4

REPORT INFORMATION
  Report Type: 
  Country: None (occurrence: None)
  Receive Date: 20061020
  Receipt Date: 20061010
  Transmission Date: 20070319
  Serious: Yes (Hospitalization, Other)
  Sender: FDA-Public Use
  Company Number: HQ3632907AUG2002

PATIENT
  Age: 64 Year
  Sex: Male
  Weight: 77.3 kg

DRUGS (2)
  1. MYLOTARG [Suspect]
     Indication: ACUTE MYELOID LEUKAEMIA
     Dosage: SEE IMAGE, INTRAVENOUS
     Route: 042
     Dates: start: 20020710, end: 20020710
  2. MYLOTARG [Suspect]
     Indication: ACUTE MYELOID LEUKAEMIA
     Dosage: SEE IMAGE, INTRAVENOUS
     Route: 042
     Dates: start: 20020724, end: 20020724

REACTIONS (14)
  - BACTERAEMIA [None]
  - BLOOD PRESSURE SYSTOLIC DECREASED [None]
  - CENTRAL LINE INFECTION [None]
  - FUNGAL INFECTION [None]
  - HAEMATOCRIT DECREASED [None]
  - HAEMOGLOBIN DECREASED [None]
  - INFUSION RELATED REACTION [None]
  - LUNG NEOPLASM [None]
  - NEUTROPENIC SEPSIS [None]
  - OXYGEN SATURATION INCREASED [None]
  - PERIORBITAL OEDEMA [None]
  - PLATELET COUNT DECREASED [None]
  - SINUS DISORDER [None]
  - STREPTOCOCCAL INFECTION [None]
